FAERS Safety Report 6206886-2 (Version None)
Quarter: 2009Q2

REPORT INFORMATION
  Report Type: 
  Country: None (occurrence: None)
  Receive Date: 20090528
  Receipt Date: 20090518
  Transmission Date: 20091009
  Serious: No
  Sender: FDA-Public Use
  Company Number: CO-AVENTIS-200915211GDDC

PATIENT
  Sex: Female

DRUGS (1)
  1. ARAVA [Suspect]
     Dosage: DOSE: UNK
     Route: 048

REACTIONS (1)
  - DRUG EXPOSURE DURING PREGNANCY [None]
